FAERS Safety Report 8589523-1 (Version None)
Quarter: 2012Q3

REPORT INFORMATION
  Report Type: 
  Country: None (occurrence: None)
  Receive Date: 20120813
  Receipt Date: 20120802
  Transmission Date: 20120928
  Serious: Yes (Other)
  Sender: FDA-Public Use
  Company Number: CN-ASTRAZENECA-2012SE55262

PATIENT
  Sex: Female
  Weight: 18 kg

DRUGS (1)
  1. BUDESONIDE [Suspect]
     Indication: BRONCHIECTASIS
     Route: 055
     Dates: start: 20100120, end: 20100120

REACTIONS (3)
  - TACHYCARDIA [None]
  - IRRITABILITY [None]
  - BRONCHOSPASM [None]
